FAERS Safety Report 25019555 (Version 3)
Quarter: 2025Q3

REPORT INFORMATION
  Report Type: Spontaneous
  Country: AU (occurrence: AU)
  Receive Date: 20250227
  Receipt Date: 20250707
  Transmission Date: 20251021
  Serious: Yes (Other)
  Sender: SANDOZ
  Company Number: AU-002147023-NVSC2025AU031513

PATIENT
  Sex: Female

DRUGS (10)
  1. ALLOPURINOL [Suspect]
     Active Substance: ALLOPURINOL
     Indication: Foetal exposure during pregnancy
     Dosage: MATERNAL EXPOSURE TIMING UNSPECIFIED:100MG QD
     Route: 064
  2. AZATHIOPRINE [Suspect]
     Active Substance: AZATHIOPRINE
     Indication: Foetal exposure during pregnancy
     Route: 064
  3. FUROSEMIDE [Suspect]
     Active Substance: FUROSEMIDE
     Indication: Foetal exposure during pregnancy
     Route: 064
  4. IRBESARTAN [Suspect]
     Active Substance: IRBESARTAN
     Indication: Foetal exposure during pregnancy
     Dosage: MATERNAL EXPOSURE TIMING UNSPECIFIED: 75 MG QD
     Route: 064
  5. METOPROLOL [Suspect]
     Active Substance: METOPROLOL
     Indication: Foetal exposure during pregnancy
     Dosage: MATERNAL EXPOSURE TIMING UNSPECIFIED: 12.5 MG BID
     Route: 064
  6. METOPROLOL [Suspect]
     Active Substance: METOPROLOL
     Dosage: 25 MG, BID MATERNAL EXPOSURE TIMING UNSPECIFIED: 25  MG BID
     Route: 064
  7. MYCOPHENOLIC ACID [Suspect]
     Active Substance: MYCOPHENOLIC ACID
     Indication: Foetal exposure during pregnancy
     Dosage: MATERNAL EXPOSURE TIMING UNSPECIFIED: 360 MG, BID
     Route: 064
  8. MYCOPHENOLIC ACID [Suspect]
     Active Substance: MYCOPHENOLIC ACID
     Dosage: 720 MG, QD,MATERNAL EXPOSURE TIMING UNSPECIFIED:
     Route: 064
  9. PANTOPRAZOLE [Suspect]
     Active Substance: PANTOPRAZOLE
     Indication: Foetal exposure during pregnancy
     Dosage: MATERNAL EXPOSURE TIMING UNSPECIFIED: 40 MG QD
     Route: 064
  10. RITUXIMAB [Suspect]
     Active Substance: RITUXIMAB
     Indication: Foetal exposure during pregnancy
     Route: 064

REACTIONS (2)
  - Premature baby [Unknown]
  - Foetal exposure timing unspecified [Unknown]
